FAERS Safety Report 4816072-6 (Version None)
Quarter: 2005Q4

REPORT INFORMATION
  Report Type: 
  Country: None (occurrence: None)
  Receive Date: 20051026
  Receipt Date: 20051018
  Transmission Date: 20060501
  Serious: Yes (Other)
  Sender: FDA-Public Use
  Company Number: 2005122618

PATIENT
  Sex: Female
  Weight: 99.7913 kg

DRUGS (2)
  1. DILANTIN [Suspect]
     Indication: CONVULSION
     Dosage: ORAL
     Route: 048
  2. DILANTIN [Suspect]
     Indication: CONVULSION
     Dosage: 750 MG, INTRAVENOUS
     Route: 042
     Dates: start: 20040101

REACTIONS (8)
  - ANTICONVULSANT DRUG LEVEL DECREASED [None]
  - CHOLECYSTITIS CHRONIC [None]
  - GANGRENE [None]
  - INCORRECT DOSE ADMINISTERED [None]
  - OEDEMA PERIPHERAL [None]
  - PERIPHERAL COLDNESS [None]
  - PULSE ABSENT [None]
  - SKIN DISCOLOURATION [None]
